FAERS Safety Report 8956810 (Version 1)
Quarter: 2012Q4

REPORT INFORMATION
  Report Type: Spontaneous
  Country: US (occurrence: None)
  Receive Date: 20121205
  Receipt Date: 20121205
  Transmission Date: 20130627
  Serious: No
  Sender: FDA-Public Use
  Company Number: None

PATIENT
  Age: 54 Year
  Sex: Female

DRUGS (1)
  1. HUMIRA ABOTT [Suspect]
     Indication: CROHN^S
     Dosage: 40mg QOWK SQ
     Route: 058
     Dates: start: 20110309

REACTIONS (1)
  - Psoriasis [None]
